FAERS Safety Report 11684192 (Version 3)
Quarter: 2016Q1

REPORT INFORMATION
  Report Type: Report from Study
  Country: BR (occurrence: BR)
  Receive Date: 20151029
  Receipt Date: 20160301
  Transmission Date: 20160525
  Serious: Yes (Other)
  Sender: FDA-Public Use
  Company Number: BR-BRISTOL-MYERS SQUIBB COMPANY-BMS-2015-071211

PATIENT
  Sex: Female

DRUGS (1)
  1. ABATACEPT [Suspect]
     Active Substance: ABATACEPT
     Indication: RHEUMATOID ARTHRITIS
     Dosage: UNK, QMO
     Route: 042

REACTIONS (12)
  - Foot operation [Unknown]
  - Arthropathy [Unknown]
  - Dizziness [Unknown]
  - Arthralgia [Unknown]
  - Somnolence [Recovered/Resolved]
  - Nausea [Unknown]
  - Fall [Unknown]
  - Haematoma [Unknown]
  - Musculoskeletal pain [Unknown]
  - Knee operation [Unknown]
  - Syncope [Unknown]
  - Vertigo [Unknown]

NARRATIVE: CASE EVENT DATE: 2013
